FAERS Safety Report 13786073 (Version 1)
Quarter: 2017Q3

REPORT INFORMATION
  Report Type: Spontaneous
  Country: US (occurrence: US)
  Receive Date: 20170725
  Receipt Date: 20170725
  Transmission Date: 20171127
  Serious: Yes (Hospitalization)
  Sender: FDA-Public Use
  Company Number: None

PATIENT
  Age: 43 Year
  Sex: Female
  Weight: 85.3 kg

DRUGS (21)
  1. QUETIAPINE. [Concomitant]
     Active Substance: QUETIAPINE
  2. ESCITALOPRAM [Concomitant]
     Active Substance: ESCITALOPRAM OXALATE
  3. TRAMADOL. [Concomitant]
     Active Substance: TRAMADOL
  4. FERROUS SULFATE. [Concomitant]
     Active Substance: FERROUS SULFATE
  5. GABAPENTIN. [Concomitant]
     Active Substance: GABAPENTIN
  6. GLIPIZIDE. [Concomitant]
     Active Substance: GLIPIZIDE
  7. MULTIVITAMIN [Concomitant]
     Active Substance: VITAMINS
  8. LIDODERM [Concomitant]
     Active Substance: LIDOCAINE
  9. FUROSEMIDE. [Concomitant]
     Active Substance: FUROSEMIDE
  10. EPCLUSA [Suspect]
     Active Substance: SOFOSBUVIR\VELPATASVIR
     Indication: HEPATITIS C
     Route: 048
     Dates: start: 20170317, end: 20170609
  11. MYLANTA [Concomitant]
     Active Substance: ALUMINUM HYDROXIDE\DIMETHICONE\MAGNESIUM HYDROXIDE
  12. MAGNESIUM [Concomitant]
     Active Substance: MAGNESIUM
  13. METFORMIN [Concomitant]
     Active Substance: METFORMIN HYDROCHLORIDE
  14. NICOTINE GUM [Concomitant]
     Active Substance: NICOTINE
  15. CYCLOBEZAPRINE [Concomitant]
  16. OMEPRAZOLE. [Concomitant]
     Active Substance: OMEPRAZOLE
  17. SUCRALFATE. [Concomitant]
     Active Substance: SUCRALFATE
  18. ZOFRAN [Concomitant]
     Active Substance: ONDANSETRON HYDROCHLORIDE
  19. OMEGA 3 FISH OIL [Concomitant]
     Active Substance: FISH OIL\OMEGA-3 FATTY ACIDS
  20. RIFAXIMIN [Concomitant]
     Active Substance: RIFAXIMIN
  21. SPIRONOLACTONE. [Concomitant]
     Active Substance: SPIRONOLACTONE

REACTIONS (19)
  - Pain [None]
  - Abdominal pain [None]
  - Head injury [None]
  - Headache [None]
  - Orthostatic hypotension [None]
  - Transaminases increased [None]
  - White blood cell count decreased [None]
  - Dizziness [None]
  - Depressed level of consciousness [None]
  - Nausea [None]
  - Blood pressure systolic decreased [None]
  - Decreased appetite [None]
  - Chest discomfort [None]
  - Muscular weakness [None]
  - Fall [None]
  - Vomiting [None]
  - Loss of consciousness [None]
  - Acute kidney injury [None]
  - Pleural effusion [None]

NARRATIVE: CASE EVENT DATE: 20170512
